FAERS Safety Report 24698319 (Version 3)
Quarter: 2024Q4

REPORT INFORMATION
  Report Type: Spontaneous
  Country: US (occurrence: US)
  Receive Date: 20241204
  Receipt Date: 20241218
  Transmission Date: 20250115
  Serious: Yes (Hospitalization, Other)
  Sender: PFIZER
  Company Number: US-PFIZER INC-PV202400157643

PATIENT
  Sex: Female

DRUGS (1)
  1. DEPO-PROVERA [Suspect]
     Active Substance: MEDROXYPROGESTERONE ACETATE
     Indication: Contraception
     Dosage: UNK
     Dates: start: 1996, end: 1997

REACTIONS (16)
  - Inappropriate antidiuretic hormone secretion [Unknown]
  - Amnesia [Recovering/Resolving]
  - Meningioma [Not Recovered/Not Resolved]
  - Diabetes insipidus [Not Recovered/Not Resolved]
  - Hyperprolactinaemia [Not Recovered/Not Resolved]
  - Optic atrophy [Not Recovered/Not Resolved]
  - Central hypothyroidism [Unknown]
  - Adrenal insufficiency [Unknown]
  - Polyuria [Not Recovered/Not Resolved]
  - Hypopituitarism [Not Recovered/Not Resolved]
  - Nocturia [Not Recovered/Not Resolved]
  - Thirst [Not Recovered/Not Resolved]
  - Migraine [Not Recovered/Not Resolved]
  - Aphasia [Not Recovered/Not Resolved]
  - Apraxia [Unknown]
  - Alopecia [Unknown]

NARRATIVE: CASE EVENT DATE: 20150101
